FAERS Safety Report 14339109 (Version 2)
Quarter: 2018Q1

REPORT INFORMATION
  Report Type: Report from Study
  Country: FR (occurrence: FR)
  Receive Date: 20171230
  Receipt Date: 20180111
  Transmission Date: 20180509
  Serious: Yes (Other)
  Sender: FDA-Public Use
  Company Number: FR-ROCHE-2045136

PATIENT

DRUGS (5)
  1. FOLINIC ACID [Suspect]
     Active Substance: LEUCOVORIN
     Indication: COLORECTAL CANCER METASTATIC
     Route: 065
  2. 5-FLUOROURACIL [Suspect]
     Active Substance: FLUOROURACIL
     Indication: COLORECTAL CANCER METASTATIC
     Route: 065
  3. RALTITREXED [Suspect]
     Active Substance: RALTITREXED
     Indication: COLORECTAL CANCER METASTATIC
     Route: 042
  4. OXALIPLATIN. [Suspect]
     Active Substance: OXALIPLATIN
     Indication: COLORECTAL CANCER METASTATIC
     Route: 042
  5. BEVACIZUMAB. [Suspect]
     Active Substance: BEVACIZUMAB
     Indication: COLORECTAL CANCER METASTATIC
     Route: 042

REACTIONS (5)
  - Paraesthesia [Unknown]
  - Palmar-plantar erythrodysaesthesia syndrome [Unknown]
  - Febrile neutropenia [Unknown]
  - Mucosal inflammation [Unknown]
  - Neutropenia [Unknown]
